FAERS Safety Report 5215275-9 (Version None)
Quarter: 2006Q4

REPORT INFORMATION
  Report Type: 
  Country: None (occurrence: None)
  Receive Date: 20061122
  Receipt Date: 20051209
  Transmission Date: 20070319
  Serious: Yes (Other)
  Sender: FDA-Public Use
  Company Number: HQWYE976713DEC05

PATIENT
  Age: 36 Year
  Sex: Female
  Weight: 73.55 kg

DRUGS (1)
  1. PREMARIN [Suspect]
     Indication: VULVOVAGINAL DRYNESS
     Dosage: ^1 APPLICATORFUL^, VAGINAL
     Route: 067
     Dates: start: 20051208

REACTIONS (1)
  - HEART RATE INCREASED [None]
